FAERS Safety Report 7768812-4 (Version None)
Quarter: 2011Q3

REPORT INFORMATION
  Report Type: 
  Country: None (occurrence: None)
  Receive Date: 20110922
  Receipt Date: 20110919
  Transmission Date: 20111222
  Serious: Yes (Hospitalization, Other)
  Sender: FDA-Public Use
  Company Number: BE-ABBOTT-11P-013-0851749-00

PATIENT
  Sex: Female
  Weight: 42 kg

DRUGS (1)
  1. HUMIRA [Suspect]
     Indication: CROHN'S DISEASE
     Route: 058
     Dates: start: 20101001, end: 20110901

REACTIONS (3)
  - COLITIS [None]
  - DRUG INEFFECTIVE [None]
  - ANAEMIA [None]
